FAERS Safety Report 7612908-4 (Version None)
Quarter: 2011Q3

REPORT INFORMATION
  Report Type: 
  Country: None (occurrence: None)
  Receive Date: 20110712
  Receipt Date: 20110511
  Transmission Date: 20111222
  Serious: Yes (Disabling, Other)
  Sender: FDA-Public Use
  Company Number: 032568

PATIENT
  Sex: Male
  Weight: 76.2 kg

DRUGS (2)
  1. KEPPRA [Suspect]
     Dosage: 1000 MG, 1500 MG
     Dates: start: 20090601, end: 20110424
  2. KEPPRA [Suspect]
     Dosage: 1000 MG, 1500 MG
     Dates: start: 20110425

REACTIONS (2)
  - JOINT DISLOCATION [None]
  - GRAND MAL CONVULSION [None]
